FAERS Safety Report 8462932-7 (Version None)
Quarter: 2012Q2

REPORT INFORMATION
  Report Type: 
  Country: None (occurrence: None)
  Receive Date: 20120323
  Receipt Date: 20110610
  Transmission Date: 20120825
  Serious: Yes (Hospitalization)
  Sender: FDA-Public Use
  Company Number: 163-21880-11061727

PATIENT
  Age: 80 Year
  Sex: Male
  Weight: 77.5651 kg

DRUGS (2)
  1. REVLIMID [Suspect]
     Indication: MULTIPLE MYELOMA
     Dosage: DAILY FOR 7 DAYS, THEN OFF 7 DAYS, PO; 25 MG, DAILY FOR 7 DAYS ON THEN 7 DAYS OFF EOW, PO
     Route: 048
     Dates: start: 20100401, end: 20100101
  2. REVLIMID [Suspect]
     Indication: MULTIPLE MYELOMA
     Dosage: DAILY FOR 7 DAYS, THEN OFF 7 DAYS, PO; 25 MG, DAILY FOR 7 DAYS ON THEN 7 DAYS OFF EOW, PO
     Route: 048
     Dates: start: 20100701

REACTIONS (1)
  - RENAL FAILURE [None]
